FAERS Safety Report 7106899-2 (Version None)
Quarter: 2010Q4

REPORT INFORMATION
  Report Type: 
  Country: None (occurrence: None)
  Receive Date: 20101116
  Receipt Date: 20100830
  Transmission Date: 20110411
  Serious: No
  Sender: FDA-Public Use
  Company Number: US-ABBOTT-10P-163-0667734-00

PATIENT
  Sex: Male
  Weight: 107.6 kg

DRUGS (3)
  1. SIMCOR [Suspect]
     Indication: LOW DENSITY LIPOPROTEIN INCREASED
     Dosage: 750/20MG
     Dates: start: 20100827, end: 20100828
  2. SIMCOR [Suspect]
     Indication: BLOOD CHOLESTEROL INCREASED
     Dates: start: 20100830
  3. LOTREL [Concomitant]
     Indication: PRODUCT USED FOR UNKNOWN INDICATION
     Dosage: UNKNOWN DOSE

REACTIONS (6)
  - ANXIETY [None]
  - FEELING HOT [None]
  - FLUSHING [None]
  - ILL-DEFINED DISORDER [None]
  - PAIN OF SKIN [None]
  - PRURITUS [None]
